FAERS Safety Report 25757139 (Version 2)
Quarter: 2025Q4

REPORT INFORMATION
  Report Type: Spontaneous
  Country: US (occurrence: US)
  Receive Date: 20250903
  Receipt Date: 20251010
  Transmission Date: 20260118
  Serious: No
  Sender: DR REDDYS
  Company Number: US-DRL-USA-USA/2025/08/012811

PATIENT

DRUGS (1)
  1. BUPRENORPHINE\NALOXONE [Suspect]
     Active Substance: BUPRENORPHINE\NALOXONE
     Indication: Product used for unknown indication

REACTIONS (2)
  - Product packaging quantity issue [Unknown]
  - Product dose omission issue [Unknown]
